FAERS Safety Report 17046293 (Version 7)
Quarter: 2020Q4

REPORT INFORMATION
  Report Type: Report from Study
  Country: ES (occurrence: ES)
  Receive Date: 20191119
  Receipt Date: 20201009
  Transmission Date: 20210113
  Serious: Yes (Other)
  Sender: FDA-Public Use
  Company Number: ES-ROCHE-2471483

PATIENT
  Age: 48 Year
  Sex: Female
  Weight: 54.3 kg

DRUGS (6)
  1. DOXORUBICIN [Suspect]
     Active Substance: DOXORUBICIN
     Indication: BREAST CANCER
     Route: 042
     Dates: start: 20190919, end: 20191031
  2. TOPIRAMATE. [Concomitant]
     Active Substance: TOPIRAMATE
     Indication: MIGRAINE
     Dates: start: 20120101
  3. IBUPROFEN. [Concomitant]
     Active Substance: IBUPROFEN
     Indication: PAIN IN EXTREMITY
     Dates: start: 20191106
  4. ATEZOLIZUMAB. [Suspect]
     Active Substance: ATEZOLIZUMAB
     Indication: BREAST CANCER
     Dosage: ON 31/OCT/2019, PATIENT RECEIVED MOST RECENT DOSE OF ATEZOLIZUMAB 1200 MG BEFORE EVENT?AFTER 3 CYCLE
     Route: 042
     Dates: start: 20190919, end: 20191031
  5. ONDASETRON [Concomitant]
     Active Substance: ONDANSETRON
     Indication: VOMITING
     Dates: start: 20191010, end: 20191106
  6. CYCLOPHOSPHAMIDE. [Suspect]
     Active Substance: CYCLOPHOSPHAMIDE
     Indication: BREAST CANCER
     Route: 042
     Dates: start: 20190919, end: 20191031

REACTIONS (1)
  - Myelitis [Recovered/Resolved with Sequelae]

NARRATIVE: CASE EVENT DATE: 20191104
